FAERS Safety Report 5799678-X (Version None)
Quarter: 2008Q3

REPORT INFORMATION
  Report Type: 
  Country: None (occurrence: None)
  Receive Date: 20080703
  Receipt Date: 20080627
  Transmission Date: 20090109
  Serious: Yes (Death)
  Sender: FDA-Public Use
  Company Number: JP-ABBOTT-07P-087-0355673-00

PATIENT
  Sex: Female

DRUGS (6)
  1. KLARICID [Suspect]
     Indication: PNEUMONIA
     Route: 048
     Dates: start: 20061002, end: 20061016
  2. ERYTHROCIN FOR INJECTION [Suspect]
     Indication: PNEUMONIA
     Route: 042
     Dates: start: 20061017, end: 20061019
  3. CEFMETAZOLE SODIUM [Suspect]
     Indication: PNEUMONIA
     Route: 042
     Dates: start: 20060929, end: 20061005
  4. MEROPENEM [Suspect]
     Indication: PNEUMONIA
     Route: 042
     Dates: start: 20061006, end: 20061019
  5. DORIPENEM HYDRATE [Suspect]
     Indication: PNEUMONIA
     Route: 042
     Dates: start: 20061018, end: 20061019
  6. DOXAPRAM HYDROCHLORIDE [Suspect]
     Indication: RESPIRATORY FAILURE
     Route: 042
     Dates: start: 20061018, end: 20061019

REACTIONS (4)
  - DEPRESSED LEVEL OF CONSCIOUSNESS [None]
  - HEPATIC FAILURE [None]
  - HEPATITIS FULMINANT [None]
  - RESPIRATORY FAILURE [None]
